FAERS Safety Report 9012784 (Version 1)
Quarter: 2013Q1

REPORT INFORMATION
  Report Type: Report from Study
  Country: JP (occurrence: JP)
  Receive Date: 20130114
  Receipt Date: 20130114
  Transmission Date: 20140127
  Serious: Yes (Death)
  Sender: FDA-Public Use
  Company Number: JP-AMGEN-JPNCT2011005070

PATIENT
  Age: 78 Year
  Sex: Female
  Weight: 47 kg

DRUGS (11)
  1. DENOSUMAB [Suspect]
     Indication: OSTEOPOROSIS
     Dosage: UNK UNK, Q6MO
     Route: 058
     Dates: start: 20090106, end: 20110107
  2. NEW CALCICHEW D3 [Concomitant]
     Indication: OSTEOPOROSIS
     Route: 048
     Dates: start: 20081209, end: 20110122
  3. PICOBEN [Concomitant]
     Indication: CONSTIPATION
     Route: 048
     Dates: end: 20110122
  4. AMLODIN [Concomitant]
     Indication: HYPERTENSION
     Route: 048
     Dates: end: 20110123
  5. SUVENYL [Concomitant]
     Indication: OSTEOARTHRITIS
     Route: 014
     Dates: end: 20110111
  6. VOLTAREN                           /00372301/ [Concomitant]
     Indication: OSTEOARTHRITIS
     Dosage: ACCORDINGLY OPTIMUM DOSE
     Route: 061
     Dates: end: 20110122
  7. LOXONIN                            /00890702/ [Concomitant]
     Indication: OSTEOARTHRITIS
     Route: 048
     Dates: end: 20110123
  8. MUCOSTA [Concomitant]
     Indication: PROPHYLAXIS
     Route: 048
     Dates: end: 20110123
  9. LASIX                              /00032601/ [Concomitant]
     Indication: HYPERTENSION
     Route: 048
     Dates: start: 20090625, end: 20110123
  10. NITOROL [Concomitant]
     Indication: ANGINA PECTORIS
     Dosage: 60 MG/DL, QD
     Route: 048
     Dates: start: 20090615, end: 20110123
  11. CANDESARTAN CILEXETIL W/HYDROCHLOROTHIAZIDE [Concomitant]
     Indication: HYPERTENSION
     Route: 048
     Dates: start: 20091027, end: 20110122

REACTIONS (1)
  - Acute myocardial infarction [Fatal]
